FAERS Safety Report 15885269 (Version 1)
Quarter: 2019Q1

REPORT INFORMATION
  Report Type: Spontaneous
  Country: IT (occurrence: IT)
  Receive Date: 20190129
  Receipt Date: 20190129
  Transmission Date: 20190417
  Serious: Yes (Hospitalization)
  Sender: FDA-Public Use
  Company Number: IT-MYLANLABS-2019M1007537

PATIENT
  Age: 28 Year
  Sex: Male
  Weight: 47 kg

DRUGS (2)
  1. PIPERACILLIN/TAZOBACTAM [Suspect]
     Active Substance: PIPERACILLIN SODIUM\TAZOBACTAM SODIUM
     Indication: BRONCHOPNEUMOPATHY
     Dosage: 4.5 GRAM, QD
     Route: 042
     Dates: start: 20170915, end: 20171002
  2. ORKAMBI [Interacting]
     Active Substance: IVACAFTOR\LUMACAFTOR
     Indication: CYSTIC FIBROSIS
     Route: 048
     Dates: start: 20170918, end: 20170930

REACTIONS (2)
  - Drug interaction [Recovering/Resolving]
  - Hypertransaminasaemia [Recovering/Resolving]

NARRATIVE: CASE EVENT DATE: 20170926
